FAERS Safety Report 7493954-0 (Version None)
Quarter: 2011Q2

REPORT INFORMATION
  Report Type: 
  Country: None (occurrence: None)
  Receive Date: 20110520
  Receipt Date: 20110512
  Transmission Date: 20111010
  Serious: Yes (Life-Threatening, Hospitalization, Other)
  Sender: FDA-Public Use
  Company Number: DK-ROCHE-775426

PATIENT
  Sex: Male
  Weight: 80 kg

DRUGS (13)
  1. ACTEMRA [Suspect]
     Route: 065
     Dates: start: 20090420
  2. ACTEMRA [Suspect]
     Route: 065
     Dates: start: 20110310, end: 20110316
  3. AZATHIOPRINE [Suspect]
     Dosage: FREQUENCY: QD
     Route: 048
     Dates: start: 20080101, end: 20110316
  4. AMLODIPINE [Concomitant]
     Indication: HYPERTENSION
     Dosage: FREQUENCY: QD
     Route: 048
  5. ACTEMRA [Suspect]
     Route: 065
     Dates: start: 20110214
  6. AZATHIOPRINE [Suspect]
     Indication: RHEUMATOID ARTHRITIS
     Route: 048
  7. ASPIRIN [Concomitant]
     Dosage: FREQUENCY: QD
     Route: 048
  8. ACTEMRA [Suspect]
     Route: 065
     Dates: start: 20090519
  9. METFORMIN HCL [Concomitant]
     Dosage: FREQUENCY: QD
     Route: 048
  10. METOPROLOL SUCCINATE [Concomitant]
     Indication: HYPERTENSION
     Route: 048
  11. ACETAMINOPHEN [Concomitant]
     Indication: PAIN
     Route: 048
  12. ACTEMRA [Suspect]
     Route: 065
     Dates: start: 20101222
  13. ACTEMRA [Suspect]
     Route: 065
     Dates: start: 20110117

REACTIONS (5)
  - LEUKOPENIA [None]
  - HYPOTENSION [None]
  - DISSEMINATED INTRAVASCULAR COAGULATION [None]
  - SEPSIS [None]
  - SEPTIC ARTHRITIS STAPHYLOCOCCAL [None]
